FAERS Safety Report 17790762 (Version 2)
Quarter: 2020Q3

REPORT INFORMATION
  Report Type: Spontaneous
  Country: US (occurrence: US)
  Receive Date: 20200514
  Receipt Date: 20200814
  Transmission Date: 20201102
  Serious: No
  Sender: FDA-Public Use
  Company Number: US-BAUSCH-BL-2020-013285

PATIENT
  Sex: Male

DRUGS (2)
  1. LUMIFY [Suspect]
     Active Substance: BRIMONIDINE TARTRATE
     Indication: PRODUCT USE IN UNAPPROVED INDICATION
  2. LUMIFY [Suspect]
     Active Substance: BRIMONIDINE TARTRATE
     Indication: ROUTINE HEALTH MAINTENANCE
     Dosage: EVERY DAY, DOSE AND FREQUENCY 1?2 (UNSPECIFIED)?START DATE: APPROXIMATELY JAN/2020
     Route: 047

REACTIONS (4)
  - Product storage error [Unknown]
  - Eye irritation [Not Recovered/Not Resolved]
  - Product odour abnormal [Unknown]
  - Product use in unapproved indication [Unknown]
